FAERS Safety Report 10621628 (Version 1)
Quarter: 2014Q4

REPORT INFORMATION
  Report Type: Spontaneous
  Country: IT (occurrence: IT)
  Receive Date: 20141203
  Receipt Date: 20141203
  Transmission Date: 20150529
  Serious: Yes (Hospitalization)
  Sender: FDA-Public Use
  Company Number: IT-ASTRAZENECA-2014SE91330

PATIENT
  Age: 22797 Day
  Sex: Male

DRUGS (7)
  1. VALSARTAN. [Concomitant]
     Active Substance: VALSARTAN
  2. MODURETIC (AMILORIDE + HCTZ) [Concomitant]
     Dosage: 5MG + 50MG
  3. BACTRIM [Suspect]
     Active Substance: SULFAMETHOXAZOLE\TRIMETHOPRIM
     Indication: SEPSIS
     Dosage: 160MG + 800MG TABLETS, 2 DF DAILY
     Route: 048
     Dates: start: 20141113
  4. MERREM [Suspect]
     Active Substance: MEROPENEM
     Indication: SEPSIS
     Route: 040
     Dates: start: 20141031
  5. ESOMEPRAZOLE [Concomitant]
     Active Substance: ESOMEPRAZOLE
  6. ZYLORIC (ALLOPURINOL) [Concomitant]
     Active Substance: ALLOPURINOL
  7. ATENOLOL. [Concomitant]
     Active Substance: ATENOLOL

REACTIONS (1)
  - Gastroenteritis [Recovered/Resolved]

NARRATIVE: CASE EVENT DATE: 20141123
